FAERS Safety Report 23736304 (Version 2)
Quarter: 2024Q2

REPORT INFORMATION
  Report Type: Spontaneous
  Country: US (occurrence: US)
  Receive Date: 20240412
  Receipt Date: 20240522
  Transmission Date: 20240715
  Serious: No
  Sender: FDA-Public Use
  Company Number: US-SA-SAC20240404001377

PATIENT
  Age: 85 Year
  Sex: Female

DRUGS (7)
  1. DUPIXENT [Suspect]
     Active Substance: DUPILUMAB
     Indication: Dermatitis atopic
     Dosage: 300 MG, QOW
     Route: 058
     Dates: start: 202402
  2. ALENDRONATE [Concomitant]
     Active Substance: ALENDRONATE SODIUM
  3. AMLODIPINE BESYLATE [Concomitant]
     Active Substance: AMLODIPINE BESYLATE
     Dosage: UNK
  4. AREXVY [Concomitant]
     Active Substance: RECOMBINANT RESPIRATORY SYNCYTIAL VIRUS PRE-FUSION F PROTEIN
     Dosage: UNK
  5. ATORVASTATIN [Concomitant]
     Active Substance: ATORVASTATIN
     Dosage: UNK
  6. DULOXETINE [Concomitant]
     Active Substance: DULOXETINE
     Dosage: UNK
  7. FAMOTIDINE [Concomitant]
     Active Substance: FAMOTIDINE
     Dosage: UNK

REACTIONS (4)
  - Fall [Not Recovered/Not Resolved]
  - Wound [Not Recovered/Not Resolved]
  - Injection site pain [Not Recovered/Not Resolved]
  - Drug ineffective [Unknown]

NARRATIVE: CASE EVENT DATE: 20240101
